FAERS Safety Report 9414478 (Version 1)
Quarter: 2013Q3

REPORT INFORMATION
  Report Type: Report from Study
  Country: RU (occurrence: RU)
  Receive Date: 20130723
  Receipt Date: 20130723
  Transmission Date: 20140515
  Serious: Yes (Other)
  Sender: FDA-Public Use
  Company Number: RU-GLAXOSMITHKLINE-B0908879A

PATIENT
  Age: 38 Year
  Sex: Male

DRUGS (1)
  1. RETIGABINE [Suspect]
     Indication: PARTIAL SEIZURES
     Dosage: 1200MG PER DAY
     Dates: start: 20110606

REACTIONS (1)
  - Retinal pigmentation [Unknown]
